FAERS Safety Report 9442152 (Version 3)
Quarter: 2014Q1

REPORT INFORMATION
  Report Type: Spontaneous
  Country: JP (occurrence: JP)
  Receive Date: 20130806
  Receipt Date: 20140331
  Transmission Date: 20141002
  Serious: Yes (Other)
  Sender: FDA-Public Use
  Company Number: PHHY2013JP083709

PATIENT
  Age: 83 Year
  Sex: Male

DRUGS (4)
  1. ZOMETA [Suspect]
     Indication: METASTASES TO BONE
     Dosage: 4 MG, (PER ADMINISTRATION)
     Route: 041
     Dates: start: 20100420, end: 20120211
  2. DECADRON [Concomitant]
     Dosage: UNK UKN, UNK
  3. CALBLOCK [Concomitant]
     Dosage: UNK UKN, UNK
     Route: 048
  4. LEUPLIN [Concomitant]
     Dosage: UNK UKN, UNK

REACTIONS (7)
  - Purulent discharge [Unknown]
  - Exposed bone in jaw [Unknown]
  - Osteonecrosis of jaw [Not Recovered/Not Resolved]
  - Erythema [Unknown]
  - Swelling [Unknown]
  - Tenderness [Unknown]
  - Fistula [Unknown]
